FAERS Safety Report 4677034-5 (Version None)
Quarter: 2005Q2

REPORT INFORMATION
  Report Type: 
  Country: None (occurrence: None)
  Receive Date: 20050526
  Receipt Date: 20050329
  Transmission Date: 20051028
  Serious: Yes (Life-Threatening, Disabling)
  Sender: FDA-Public Use
  Company Number: WAES 0503USA05115

PATIENT
  Age: 73 Year
  Sex: Female

DRUGS (9)
  1. VYTORIN [Suspect]
     Indication: BLOOD CHOLESTEROL INCREASED
     Dosage: 10-40MG  DAILY; PO
     Route: 048
     Dates: start: 20050316, end: 20050321
  2. COMPAZINE [Concomitant]
  3. ELAVIL [Concomitant]
  4. HYDRODIURIL [Concomitant]
  5. LOPRESSOR [Concomitant]
  6. ALPRAZOLAM [Concomitant]
  7. DILTIAZEM HYDROCHLORIDE [Concomitant]
  8. HYOSCYAMINE [Concomitant]
  9. OMEPRAZOLE [Concomitant]

REACTIONS (3)
  - HEADACHE [None]
  - MYALGIA [None]
  - NAUSEA [None]
